FAERS Safety Report 25910684 (Version 1)
Quarter: 2025Q4

REPORT INFORMATION
  Report Type: Report from Study
  Country: CA (occurrence: CA)
  Receive Date: 20251013
  Receipt Date: 20251013
  Transmission Date: 20260118
  Serious: Yes (Death)
  Sender: CSL BEHRING
  Company Number: CA-BEH-2025191570

PATIENT
  Age: 89 Year
  Sex: Male
  Weight: 63 kg

DRUGS (5)
  1. HIZENTRA [Suspect]
     Active Substance: HUMAN IMMUNOGLOBULIN G
     Indication: Primary immunodeficiency syndrome
     Dosage: 6 G, QW
     Route: 065
     Dates: start: 20230125
  2. HIZENTRA [Suspect]
     Active Substance: HUMAN IMMUNOGLOBULIN G
     Dosage: 6 G, QW
     Route: 058
     Dates: start: 20230125, end: 20251003
  3. BISOPROLOL [Concomitant]
     Active Substance: BISOPROLOL
  4. Auro rosuvastatin [Concomitant]
  5. TAMSULOSIN HYDROCHLORIDE [Concomitant]
     Active Substance: TAMSULOSIN HYDROCHLORIDE

REACTIONS (2)
  - Death [Fatal]
  - Infusion site haemorrhage [Unknown]

NARRATIVE: CASE EVENT DATE: 20251001
